FAERS Safety Report 18343763 (Version 3)
Quarter: 2021Q1

REPORT INFORMATION
  Report Type: Spontaneous
  Country: AU (occurrence: AU)
  Receive Date: 20201005
  Receipt Date: 20210311
  Transmission Date: 20210419
  Serious: Yes (Hospitalization, Other)
  Sender: FDA-Public Use
  Company Number: AU-JNJFOC-A-CH2019-197552

PATIENT
  Age: 66 Year
  Sex: Female

DRUGS (10)
  1. SILDENAFIL. [Suspect]
     Active Substance: SILDENAFIL
     Dosage: 50 MG, TID
     Route: 048
  2. OXYGEN. [Concomitant]
     Active Substance: OXYGEN
     Indication: PULMONARY ARTERIAL HYPERTENSION
     Dosage: UNK
     Route: 055
     Dates: start: 20120223
  3. SPIRONOLACTONE. [Concomitant]
     Active Substance: SPIRONOLACTONE
     Indication: PULMONARY ARTERIAL HYPERTENSION
     Dosage: 25 MG, QD
     Route: 048
     Dates: start: 20130701
  4. VELETRI [Suspect]
     Active Substance: EPOPROSTENOL
     Indication: PULMONARY ARTERIAL HYPERTENSION
     Dosage: 1.5 MG OD, CONT INFUS
     Route: 042
     Dates: start: 20121129
  5. SILDENAFIL. [Suspect]
     Active Substance: SILDENAFIL
     Dosage: 20 MG, TID
     Route: 048
  6. SILDENAFIL. [Suspect]
     Active Substance: SILDENAFIL
     Dosage: 12.5 MG, TID
     Route: 048
  7. OPSUMIT [Suspect]
     Active Substance: MACITENTAN
     Indication: PULMONARY ARTERIAL HYPERTENSION
     Dosage: 10 MG, OD
     Route: 048
     Dates: start: 20140531
  8. SPAN K [Concomitant]
     Indication: PULMONARY ARTERIAL HYPERTENSION
     Dosage: 4200 MG, QID
  9. SILDENAFIL. [Suspect]
     Active Substance: SILDENAFIL
     Indication: PULMONARY ARTERIAL HYPERTENSION
     Dosage: 25 MG, TID
     Route: 048
     Dates: start: 20140218
  10. FRUSEMIDE [Concomitant]
     Active Substance: FUROSEMIDE
     Indication: PULMONARY ARTERIAL HYPERTENSION
     Dosage: 250 MG, BID
     Route: 048
     Dates: start: 20111101

REACTIONS (14)
  - Dyspnoea [Recovered/Resolved]
  - Nausea [Recovered/Resolved]
  - Pallor [Recovering/Resolving]
  - Catheter management [Unknown]
  - Transfusion [Unknown]
  - Lower respiratory tract infection [Unknown]
  - Product quality issue [Unknown]
  - Rehabilitation therapy [Unknown]
  - Pneumonia aspiration [Recovered/Resolved]
  - Dizziness [Recovered/Resolved]
  - Device kink [Recovering/Resolving]
  - Malaise [Unknown]
  - Gastroenteritis salmonella [Unknown]
  - Device alarm issue [Recovering/Resolving]

NARRATIVE: CASE EVENT DATE: 20200128
